FAERS Safety Report 6556870-4 (Version None)
Quarter: 2010Q1

REPORT INFORMATION
  Report Type: 
  Country: None (occurrence: None)
  Receive Date: 20100128
  Receipt Date: 20100125
  Transmission Date: 20100710
  Serious: Yes (Life-Threatening, Hospitalization)
  Sender: FDA-Public Use
  Company Number: PHEH2009US16773

PATIENT
  Sex: Female

DRUGS (2)
  1. AFINITOR [Suspect]
     Dosage: UNK
  2. CELEXA [Concomitant]

REACTIONS (9)
  - COUGH [None]
  - DYSPNOEA [None]
  - MALAISE [None]
  - METASTASIS [None]
  - NASAL CONGESTION [None]
  - PULMONARY CONGESTION [None]
  - PYREXIA [None]
  - RESPIRATORY TRACT INFECTION [None]
  - WHEEZING [None]
